FAERS Safety Report 4658601-1 (Version None)
Quarter: 2005Q2

REPORT INFORMATION
  Report Type: 
  Country: None (occurrence: None)
  Receive Date: 20050511
  Receipt Date: 20050317
  Transmission Date: 20051028
  Serious: Yes (Other)
  Sender: FDA-Public Use
  Company Number: US-BRISTOL-MYERS SQUIBB COMPANY-12902094

PATIENT
  Age: 75 Year
  Sex: Male

DRUGS (1)
  1. ERBITUX [Suspect]
     Route: 042
     Dates: start: 20050316, end: 20050316

REACTIONS (2)
  - PERIRECTAL ABSCESS [None]
  - URINARY RETENTION [None]
